FAERS Safety Report 4322878-2 (Version None)
Quarter: 2004Q1

REPORT INFORMATION
  Report Type: 
  Country: None (occurrence: None)
  Receive Date: 20040322
  Receipt Date: 20040310
  Transmission Date: 20041129
  Serious: Yes (Death, Hospitalization)
  Sender: FDA-Public Use
  Company Number: HQWYE725211MAR04

PATIENT
  Age: 57 Year
  Sex: Female

DRUGS (16)
  1. PANTOLOC (PANTOPRAZOLE, TABLET, DELAYED RELEASE) [Suspect]
     Indication: DUODENITIS
     Dosage: 40 MG 1 X PER 1 DAY
     Route: 048
     Dates: start: 20031020, end: 20031113
  2. PANTOLOC (PANTOPRAZOLE, TABLET, DELAYED RELEASE) [Suspect]
     Indication: GASTRITIS
     Dosage: 40 MG 1 X PER 1 DAY
     Route: 048
     Dates: start: 20031020, end: 20031113
  3. PANTOLOC (PANTOPRAZOLE, TABLET, DELAYED RELEASE) [Suspect]
     Indication: GASTRITIS HAEMORRHAGIC
     Dosage: 40 MG 1 X PER 1 DAY
     Route: 048
     Dates: start: 20031020, end: 20031113
  4. FUROSEMIDE [Suspect]
     Indication: ASCITES
     Dosage: 20 MG 1 X PER 1 DAY
     Route: 048
     Dates: start: 20031020, end: 20031113
  5. ENALAPRIL MALEATE [Concomitant]
  6. TRAMADOL HCL [Concomitant]
  7. LACTULOSE [Concomitant]
  8. KONAKION [Concomitant]
  9. ORALOVITE (ASCORBIC ACID/NICOTINAMIDE/PYRIDOXINE HYDROCHLORIDE/RIBOFLA [Concomitant]
  10. IDEOS (CALCIUM CARBONATE/COLECALCIFEROL) [Concomitant]
  11. PREDNISOLONE [Concomitant]
  12. CALCIUM WITH VITAMIN D (CALCIUM PHOSPHATE/CALCIUM SODIUM LACTATE/ EGOC [Concomitant]
  13. VITAMIN B (VITAMIN B) [Concomitant]
  14. VITAMIN C (ASCORBIC ACID) [Concomitant]
  15. CLEMASTINE (CLEMASTINE) [Concomitant]
  16. SPIRONOLACTONE [Concomitant]

REACTIONS (8)
  - ASCITES [None]
  - HEPATIC CIRRHOSIS [None]
  - MULTI-ORGAN FAILURE [None]
  - PULMONARY FUNCTION TEST DECREASED [None]
  - RENAL FAILURE [None]
  - SHOCK [None]
  - STEVENS-JOHNSON SYNDROME [None]
  - TOXIC EPIDERMAL NECROLYSIS [None]
